FAERS Safety Report 8824716 (Version 3)
Quarter: 2012Q4

REPORT INFORMATION
  Report Type: Report from Study
  Country: KR (occurrence: KR)
  Receive Date: 20121004
  Receipt Date: 20121128
  Transmission Date: 20130627
  Serious: Yes (Hospitalization)
  Sender: FDA-Public Use
  Company Number: PHHO2012KR013525

PATIENT
  Sex: Male
  Weight: 47 kg

DRUGS (14)
  1. EVEROLIMUS [Suspect]
     Indication: RENAL TRANSPLANT
     Dosage: 1 mg, BID
     Route: 048
     Dates: start: 20120818
  2. NEORAL [Suspect]
     Indication: RENAL TRANSPLANT
     Dosage: 112.5 mg, BID
     Route: 048
     Dates: start: 20120827
  3. MYFORTIC [Suspect]
     Indication: RENAL TRANSPLANT
     Dosage: UNK
     Route: 048
  4. TRAZODONE [Concomitant]
     Indication: DEPRESSION
     Dosage: 25 mg, BID
     Route: 048
     Dates: start: 2007
  5. TENORMIN [Concomitant]
     Indication: PROPHYLAXIS
     Dosage: 50 mg, QD
     Route: 048
     Dates: start: 20120819
  6. FEROBA-YOU [Concomitant]
     Indication: ANAEMIA
     Dosage: 256.26 mg, BID
     Route: 048
     Dates: start: 1997
  7. PYRIDOXINE [Concomitant]
     Indication: PROPHYLAXIS
     Dosage: 50 mg, QD
     Route: 048
     Dates: start: 20120814
  8. ZID [Concomitant]
     Indication: PROPHYLAXIS
     Dosage: 100 mg, TID
     Route: 048
     Dates: start: 20120814
  9. SEPTRIN [Concomitant]
     Indication: PROPHYLAXIS
     Dosage: 1 DF, QD
     Route: 048
     Dates: start: 20120816
  10. XANAX [Concomitant]
     Indication: DEPRESSION
     Dosage: 0.5 mg, BID
     Route: 048
     Dates: start: 2007
  11. SIGMART [Concomitant]
     Indication: COARCTATION OF THE AORTA
     Dosage: 5 mg, BID
     Route: 048
     Dates: start: 2000
  12. FOLIC ACID [Concomitant]
     Indication: ANAEMIA
     Dosage: 1 mg, BID
     Route: 048
     Dates: start: 1997
  13. MAGNESIUM OXIDE [Concomitant]
     Indication: CONSTIPATION
     Dosage: 250 mg, TID
     Route: 048
     Dates: start: 20120917
  14. TAGAMET [Concomitant]
     Indication: GASTRITIS ATROPHIC
     Dosage: 200 mg, BID
     Route: 048
     Dates: start: 20120917

REACTIONS (1)
  - Oliguria [Recovering/Resolving]
